FAERS Safety Report 11944441 (Version 1)
Quarter: 2016Q1

REPORT INFORMATION
  Report Type: Spontaneous
  Country: CG (occurrence: CG)
  Receive Date: 20160125
  Receipt Date: 20160125
  Transmission Date: 20160526
  Serious: Yes (Death, Other)
  Sender: FDA-Public Use
  Company Number: CG-GLAXOSMITHKLINE-CG2016GSK007279

PATIENT
  Age: 4 Month
  Sex: Male

DRUGS (2)
  1. DEXAMETHASONE. [Suspect]
     Active Substance: DEXAMETHASONE
     Indication: BRONCHIOLITIS
     Dosage: UNK
     Route: 042
     Dates: start: 20160118, end: 20160119
  2. VENTOLINE AEROSOL [Suspect]
     Active Substance: ALBUTEROL
     Indication: BRONCHIOLITIS
     Dosage: UNK
     Dates: start: 20160118, end: 20160119

REACTIONS (1)
  - Death [Fatal]
